FAERS Safety Report 10985029 (Version 1)
Quarter: 2015Q1

REPORT INFORMATION
  Report Type: Spontaneous
  Country: US (occurrence: None)
  Receive Date: 20150312
  Receipt Date: 20150312
  Transmission Date: 20150721
  Serious: Yes (Other)
  Sender: FDA-Public Use
  Company Number: 1000064673

PATIENT
  Age: 42 Year
  Sex: Female

DRUGS (6)
  1. SAVELLA [Suspect]
     Active Substance: MILNACIPRAN HYDROCHLORIDE
     Dates: start: 201403
  2. CELEXA (CITALOPRAM HYDROBROMIDE) (CITALOPRAM HYDROBROMIDE) [Concomitant]
  3. NEURONTIN (GABAPENTIN) (GABAPENTIN) [Concomitant]
  4. NEXIUM (ESOMEPRAZOLE) (ESOMEPRAZOLE) [Concomitant]
  5. SAVELLA [Suspect]
     Active Substance: MILNACIPRAN HYDROCHLORIDE
     Indication: MONONEURITIS
     Dates: start: 201403
  6. TRILEPTAL (OXCARBAZEPINE) (OXCARBAZEPINE) [Concomitant]

REACTIONS (2)
  - Off label use [None]
  - Hypertension [None]

NARRATIVE: CASE EVENT DATE: 201403
